FAERS Safety Report 6417304-3 (Version None)
Quarter: 2009Q4

REPORT INFORMATION
  Report Type: 
  Country: None (occurrence: None)
  Receive Date: 20091028
  Receipt Date: 20091019
  Transmission Date: 20100525
  Serious: Yes (Other)
  Sender: FDA-Public Use
  Company Number: PHHY2009IE40897

PATIENT
  Sex: Male

DRUGS (2)
  1. CLOZARIL [Suspect]
     Indication: SCHIZOPHRENIA
     Dosage: 575 MG, QD
     Route: 048
     Dates: start: 20030109
  2. KEFLEX [Suspect]
     Indication: URINARY TRACT INFECTION
     Dosage: 500 MG, QID
     Route: 048
     Dates: start: 20090922, end: 20090926

REACTIONS (3)
  - KIDNEY INFECTION [None]
  - PROTEINURIA [None]
  - URINARY TRACT INFECTION [None]
